FAERS Safety Report 5179950-7 (Version None)
Quarter: 2006Q4

REPORT INFORMATION
  Report Type: 
  Country: None (occurrence: None)
  Receive Date: 20061211
  Receipt Date: 20061123
  Transmission Date: 20070319
  Serious: Yes (Other)
  Sender: FDA-Public Use
  Company Number: S06-BEL-05062-01

PATIENT
  Age: 75 Year
  Sex: Male

DRUGS (6)
  1. SIPRALEXA             (ESCITALOPRAM) [Suspect]
     Indication: DEPRESSION
     Dates: start: 20060105, end: 20060816
  2. SIPRALEXA                (ESCITALOPRAM) [Suspect]
     Indication: DEPRESSION
     Dates: start: 20060928
  3. DEPAKENE [Concomitant]
  4. LAMBIPOL             (LAMOTRIGINE) [Concomitant]
  5. AMARYLLE                (GLIMEPIRIDE) [Concomitant]
  6. SERTRALINE [Concomitant]

REACTIONS (5)
  - CONDITION AGGRAVATED [None]
  - DEPRESSION [None]
  - DIABETES MELLITUS [None]
  - DISEASE RECURRENCE [None]
  - WEIGHT INCREASED [None]
